FAERS Safety Report 9769520 (Version 1)
Quarter: 2013Q4

REPORT INFORMATION
  Report Type: Report from Study
  Country: CA (occurrence: CA)
  Receive Date: 20131218
  Receipt Date: 20131218
  Transmission Date: 20140711
  Serious: Yes (Other)
  Sender: FDA-Public Use
  Company Number: CA-JNJFOC-20131207768

PATIENT
  Sex: Male
  Weight: 60.6 kg

DRUGS (5)
  1. REMICADE [Suspect]
     Indication: CROHN^S DISEASE
     Route: 042
     Dates: start: 20130514
  2. REMICADE [Suspect]
     Indication: CROHN^S DISEASE
     Route: 042
     Dates: start: 20131210
  3. LOSEC [Concomitant]
     Route: 065
  4. FOLIC ACID [Concomitant]
     Route: 065
  5. FOSAMAX [Concomitant]
     Route: 065

REACTIONS (1)
  - Fistula [Not Recovered/Not Resolved]
